FAERS Safety Report 6697712-6 (Version None)
Quarter: 2010Q2

REPORT INFORMATION
  Report Type: 
  Country: None (occurrence: None)
  Receive Date: 20100423
  Receipt Date: 20100415
  Transmission Date: 20101027
  Serious: Yes (Life-Threatening, Hospitalization, Other)
  Sender: FDA-Public Use
  Company Number: 2010US001193

PATIENT
  Age: 63 Year
  Sex: Male
  Weight: 135 kg

DRUGS (12)
  1. AMEVIVE [Suspect]
     Indication: PSORIASIS
     Dosage: 15 MG, EVERY OTHER WEEK, INTRAMUSCULAR
     Route: 030
     Dates: start: 20080916, end: 20081202
  2. AMEVIVE [Suspect]
     Indication: PSORIASIS
     Dosage: 15 MG, EVERY OTHER WEEK, INTRAMUSCULAR
     Route: 030
     Dates: start: 20090323, end: 20090626
  3. COREG [Concomitant]
  4. DIGOXIN [Concomitant]
  5. ENALAPRIL MALEATE [Concomitant]
  6. PAXIL [Concomitant]
  7. LASIX [Concomitant]
  8. METOLAZONE [Concomitant]
  9. PERCOCET [Concomitant]
  10. POTASSIUM (POTASSIUM) [Concomitant]
  11. COUMADIN [Concomitant]
  12. ASPIRIN [Concomitant]

REACTIONS (5)
  - HAEMATOMA [None]
  - LIMB INJURY [None]
  - SKIN GRAFT [None]
  - WOUND HAEMORRHAGE [None]
  - WOUND INFECTION STAPHYLOCOCCAL [None]
